FAERS Safety Report 5735332-8 (Version None)
Quarter: 2008Q2

REPORT INFORMATION
  Report Type: 
  Country: None (occurrence: None)
  Receive Date: 20080508
  Receipt Date: 20080508
  Transmission Date: 20081010
  Serious: Yes (Disabling)
  Sender: FDA-Public Use
  Company Number: None

PATIENT
  Age: 59 Year
  Sex: Female
  Weight: 56.246 kg

DRUGS (6)
  1. CREST PRO HEALTH  RINSE [Suspect]
     Indication: BREATH ODOUR
     Dosage: 4 TABLESPOONS  OD -MORNING-  DENTAL
     Route: 004
     Dates: start: 20060212, end: 20080506
  2. CREST PRO HEALTH  RINSE [Suspect]
     Indication: DENTAL PLAQUE
     Dosage: 4 TABLESPOONS  OD -MORNING-  DENTAL
     Route: 004
     Dates: start: 20060212, end: 20080506
  3. CREST PRO HEALTH  RINSE [Suspect]
     Indication: GINGIVITIS
     Dosage: 4 TABLESPOONS  OD -MORNING-  DENTAL
     Route: 004
     Dates: start: 20060212, end: 20080506
  4. CREST PRO HEALTH NIGHT  RINSE [Suspect]
     Indication: BREATH ODOUR
     Dosage: 4 TABLESPOONS  HS-NIGHT- DENTAL
     Route: 004
     Dates: start: 20070110, end: 20080505
  5. CREST PRO HEALTH NIGHT  RINSE [Suspect]
     Indication: DENTAL PLAQUE
     Dosage: 4 TABLESPOONS  HS-NIGHT- DENTAL
     Route: 004
     Dates: start: 20070110, end: 20080505
  6. CREST PRO HEALTH NIGHT  RINSE [Suspect]
     Indication: GINGIVITIS
     Dosage: 4 TABLESPOONS  HS-NIGHT- DENTAL
     Route: 004
     Dates: start: 20070110, end: 20080505

REACTIONS (3)
  - ANGER [None]
  - FEAR [None]
  - TOOTH DISCOLOURATION [None]
